FAERS Safety Report 14457190 (Version 1)
Quarter: 2018Q1

REPORT INFORMATION
  Report Type: Report from Study
  Country: None (occurrence: US)
  Receive Date: 20180130
  Receipt Date: 20180130
  Transmission Date: 20180509
  Serious: Yes (Death, Hospitalization)
  Sender: FDA-Public Use
  Company Number: US-ABBVIE-17P-163-2204134-00

PATIENT
  Age: 5 Month
  Sex: Male

DRUGS (3)
  1. SYNAGIS [Suspect]
     Active Substance: PALIVIZUMAB
     Indication: INTERRUPTION OF AORTIC ARCH
  2. SYNAGIS [Suspect]
     Active Substance: PALIVIZUMAB
     Indication: PULMONARY ARTERIAL HYPERTENSION
     Dosage: PALIVIZUMAB: 100.0MG
     Route: 030
     Dates: start: 20171120
  3. SYNAGIS [Suspect]
     Active Substance: PALIVIZUMAB
     Indication: ANTIVIRAL PROPHYLAXIS

REACTIONS (2)
  - Cardiac disorder [Fatal]
  - Dehydration [Unknown]

NARRATIVE: CASE EVENT DATE: 20171215
